FAERS Safety Report 8623177-0 (Version None)
Quarter: 2012Q3

REPORT INFORMATION
  Report Type: 
  Country: None (occurrence: None)
  Receive Date: 20120827
  Receipt Date: 20120822
  Transmission Date: 20120928
  Serious: Yes (Hospitalization, Other)
  Sender: FDA-Public Use
  Company Number: PHHY2011CA80181

PATIENT
  Sex: Female

DRUGS (8)
  1. CALCIUM [Concomitant]
  2. ZOLEDRONOC ACID [Suspect]
     Route: 042
     Dates: start: 20110829
  3. VITAMIN D [Concomitant]
  4. HYDROCHLOROTHIAZIDE [Concomitant]
  5. CITALOPRAM HYDROBROMIDE [Concomitant]
  6. ZOLEDRONOC ACID [Suspect]
     Indication: OSTEOPOROSIS
     Route: 042
     Dates: start: 20090804
  7. CRESTOR [Concomitant]
  8. ZOLEDRONOC ACID [Suspect]
     Route: 042
     Dates: start: 20100810

REACTIONS (5)
  - FALL [None]
  - BLOOD PRESSURE INCREASED [None]
  - HIP FRACTURE [None]
  - BLOOD CREATININE DECREASED [None]
  - UPPER LIMB FRACTURE [None]
